FAERS Safety Report 8018203-6 (Version None)
Quarter: 2012Q1

REPORT INFORMATION
  Report Type: 
  Country: None (occurrence: None)
  Receive Date: 20120103
  Receipt Date: 20111226
  Transmission Date: 20120608
  Serious: Yes (Congenital Anomaly, Other)
  Sender: FDA-Public Use
  Company Number: JP-BRISTOL-MYERS SQUIBB COMPANY-16247140

PATIENT

DRUGS (1)
  1. BARACLUDE [Suspect]
     Route: 064
     Dates: start: 20100917

REACTIONS (2)
  - CLEFT LIP [None]
  - ANOMALY OF EXTERNAL EAR CONGENITAL [None]
